FAERS Safety Report 8559220-7 (Version None)
Quarter: 2012Q3

REPORT INFORMATION
  Report Type: 
  Country: None (occurrence: None)
  Receive Date: 20120720
  Receipt Date: 20120709
  Transmission Date: 20120928
  Serious: Yes (Death, Other)
  Sender: FDA-Public Use
  Company Number: 2012P1048758

PATIENT
  Age: 32 Year
  Sex: Male

DRUGS (1)
  1. AMIODARONE (NO PREF. NAME) [Suspect]
     Indication: CARDIOVERSION
     Dosage: 300 MG;X1;IV
     Route: 042

REACTIONS (4)
  - VENTRICULAR FIBRILLATION [None]
  - CARDIAC ARREST [None]
  - RESPIRATORY FAILURE [None]
  - COMA [None]
